FAERS Safety Report 10253070 (Version 1)
Quarter: 2014Q2

REPORT INFORMATION
  Report Type: Spontaneous
  Country: BR (occurrence: BR)
  Receive Date: 20140623
  Receipt Date: 20140623
  Transmission Date: 20141212
  Serious: Yes (Other)
  Sender: FDA-Public Use
  Company Number: BR-PFIZER INC-2014168283

PATIENT
  Age: 70 Year
  Sex: Female
  Weight: 82 kg

DRUGS (2)
  1. LIPITOR [Suspect]
     Indication: BLOOD CHOLESTEROL INCREASED
     Dosage: 20 MG (1 TABLET), DAILY
     Route: 048
     Dates: start: 2008
  2. ARADOIS [Concomitant]
     Indication: BLOOD PRESSURE
     Dosage: 3 DF (3 TABLETS), DAILY
     Dates: start: 2011

REACTIONS (1)
  - Diabetes mellitus [Unknown]
